FAERS Safety Report 22653839 (Version 1)
Quarter: 2023Q2

REPORT INFORMATION
  Report Type: Report from Study
  Country: US (occurrence: US)
  Receive Date: 20230629
  Receipt Date: 20230629
  Transmission Date: 20230722
  Serious: Yes (Death, Other)
  Sender: FDA-Public Use
  Company Number: US-MYLANLABS-2023M1068305

PATIENT
  Age: 78 Year
  Sex: Male

DRUGS (3)
  1. CLADRIBINE [Suspect]
     Active Substance: CLADRIBINE
     Indication: Blastic plasmacytoid dendritic cell neoplasia
     Dosage: UNK, CYCLE
     Route: 065
  2. DECITABINE [Suspect]
     Active Substance: DECITABINE
     Indication: Blastic plasmacytoid dendritic cell neoplasia
     Dosage: 20 MILLIGRAM/SQ. METER, CYCLE
     Route: 065
  3. VENETOCLAX [Suspect]
     Active Substance: VENETOCLAX
     Indication: Blastic plasmacytoid dendritic cell neoplasia
     Dosage: 400 MILLIGRAM, CYCLE
     Route: 065

REACTIONS (3)
  - Disease progression [Fatal]
  - Drug ineffective [Fatal]
  - Cytopenia [Unknown]
